FAERS Safety Report 19489048 (Version 2)
Quarter: 2021Q3

REPORT INFORMATION
  Report Type: Spontaneous
  Country: ES (occurrence: ES)
  Receive Date: 20210703
  Receipt Date: 20210719
  Transmission Date: 20211014
  Serious: Yes (Hospitalization, Other)
  Sender: FDA-Public Use
  Company Number: ES-MACLEODS PHARMACEUTICALS US LTD-MAC2021031727

PATIENT

DRUGS (3)
  1. EPINEPHRINE. [Suspect]
     Active Substance: EPINEPHRINE
     Indication: INFILTRATION ANAESTHESIA
     Dosage: UNK, SOLUTION, AT A FINAL CONCENTRATION OF 1:100,000
     Route: 065
  2. SODIUM CHLORIDE. [Concomitant]
     Active Substance: SODIUM CHLORIDE
     Indication: PRODUCT USED FOR UNKNOWN INDICATION
     Dosage: UNK
     Route: 065
  3. LIDOCAINE. [Suspect]
     Active Substance: LIDOCAINE
     Indication: INFILTRATION ANAESTHESIA
     Dosage: 0.05 PERCENT, SOLUTION
     Route: 065

REACTIONS (3)
  - Axillary nerve injury [Recovered/Resolved]
  - Neurotoxicity [Recovered/Resolved]
  - Paralysis [Recovered/Resolved]
